FAERS Safety Report 7236671-4 (Version None)
Quarter: 2011Q1

REPORT INFORMATION
  Report Type: 
  Country: None (occurrence: None)
  Receive Date: 20110112
  Receipt Date: 20110103
  Transmission Date: 20110831
  Serious: Yes (Hospitalization, Other)
  Sender: FDA-Public Use
  Company Number: 1000016954

PATIENT
  Age: 48 Year
  Sex: Female
  Weight: 106.5 kg

DRUGS (15)
  1. SAVELLA [Suspect]
     Indication: FIBROMYALGIA
     Dosage: 50 MG (50 MG, 1 IN 1 D), ORAL, 25 MG (25 MG, 1 IN 1 D), ORAL
     Route: 048
     Dates: start: 20101022, end: 20101023
  2. SAVELLA [Suspect]
     Indication: NEURALGIA
     Dosage: 50 MG (50 MG, 1 IN 1 D), ORAL, 25 MG (25 MG, 1 IN 1 D), ORAL
     Route: 048
     Dates: start: 20101022, end: 20101023
  3. SEROQUEL (QUETIAPINE) (QUETIAPINE) [Concomitant]
  4. CLONAZEPAM [Concomitant]
  5. LISINOPRIL/HCTZ (PRINZIDE) (PRINZIDE) [Concomitant]
  6. SAVELLA [Suspect]
     Indication: FIBROMYALGIA
     Dosage: 25 MG (12.5 MG, 1 IN 1 D, ORAL, 25 MG (12.5 MG, 2 IN 1 D), ORAL, 50 MG (25 MG, 2 IN 1 D), ORAL
     Route: 048
     Dates: start: 20101003, end: 20101006
  7. SAVELLA [Suspect]
     Indication: NEURALGIA
     Dosage: 25 MG (12.5 MG, 1 IN 1 D, ORAL, 25 MG (12.5 MG, 2 IN 1 D), ORAL, 50 MG (25 MG, 2 IN 1 D), ORAL
     Route: 048
     Dates: start: 20101003, end: 20101006
  8. SAVELLA [Suspect]
     Indication: FIBROMYALGIA
     Dosage: 25 MG (12.5 MG, 1 IN 1 D, ORAL, 25 MG (12.5 MG, 2 IN 1 D), ORAL, 50 MG (25 MG, 2 IN 1 D), ORAL
     Route: 048
     Dates: start: 20101001, end: 20101002
  9. SAVELLA [Suspect]
     Indication: NEURALGIA
     Dosage: 25 MG (12.5 MG, 1 IN 1 D, ORAL, 25 MG (12.5 MG, 2 IN 1 D), ORAL, 50 MG (25 MG, 2 IN 1 D), ORAL
     Route: 048
     Dates: start: 20101001, end: 20101002
  10. SAVELLA [Suspect]
     Indication: FIBROMYALGIA
     Dosage: 25 MG (12.5 MG, 1 IN 1 D, ORAL, 25 MG (12.5 MG, 2 IN 1 D), ORAL, 50 MG (25 MG, 2 IN 1 D), ORAL
     Route: 048
     Dates: start: 20100930, end: 20100930
  11. SAVELLA [Suspect]
     Indication: NEURALGIA
     Dosage: 25 MG (12.5 MG, 1 IN 1 D, ORAL, 25 MG (12.5 MG, 2 IN 1 D), ORAL, 50 MG (25 MG, 2 IN 1 D), ORAL
     Route: 048
     Dates: start: 20100930, end: 20100930
  12. ZANAFLEX (TIZANIDINE HYDROCHLORIDE (TIZANIDINE HYDROCHLORIDE) [Concomitant]
  13. SAVELLA [Suspect]
     Indication: NEURALGIA
     Dosage: 100 MG (50 MG, 2 IN 1 D), ORAL
     Route: 048
     Dates: start: 20101007, end: 20101001
  14. SAVELLA [Suspect]
     Indication: FIBROMYALGIA
     Dosage: 100 MG (50 MG, 2 IN 1 D), ORAL
     Route: 048
     Dates: start: 20101007, end: 20101001
  15. PEPCID (FAMOTIDINE (FAMOTIDINE) [Concomitant]

REACTIONS (17)
  - MOOD SWINGS [None]
  - HOMICIDAL IDEATION [None]
  - WEIGHT DECREASED [None]
  - PAIN [None]
  - SPEECH DISORDER [None]
  - AGITATION [None]
  - PARAESTHESIA [None]
  - NAUSEA [None]
  - CRYING [None]
  - DRUG DEPENDENCE [None]
  - DISTURBANCE IN ATTENTION [None]
  - CONFUSIONAL STATE [None]
  - INSOMNIA [None]
  - TREATMENT NONCOMPLIANCE [None]
  - HEADACHE [None]
  - ANXIETY [None]
  - ANGER [None]
